FAERS Safety Report 11527894 (Version 1)
Quarter: 2015Q3

REPORT INFORMATION
  Report Type: Spontaneous
  Country: ES (occurrence: ES)
  Receive Date: 20150920
  Receipt Date: 20150920
  Transmission Date: 20151125
  Serious: Yes (Other)
  Sender: FDA-Public Use
  Company Number: ES-AMGEN-ESPSP2015095833

PATIENT
  Age: 56 Year
  Sex: Male

DRUGS (3)
  1. PRITOR                             /01421801/ [Concomitant]
     Indication: HYPERTENSION
     Dosage: 1 DF, 1X/DAY (1 TABLET OF 80 MG/12.5)
  2. ARAVA [Concomitant]
     Active Substance: LEFLUNOMIDE
     Indication: PSORIASIS
     Dosage: 10 MG, 1X/DAY
  3. ENBREL [Suspect]
     Active Substance: ETANERCEPT
     Indication: PSORIASIS
     Dosage: 50 MG, WEEKLY
     Route: 058

REACTIONS (3)
  - Limb injury [Not Recovered/Not Resolved]
  - Post procedural complication [Unknown]
  - Foot fracture [Not Recovered/Not Resolved]
